FAERS Safety Report 5182014-X (Version None)
Quarter: 2006Q4

REPORT INFORMATION
  Report Type: 
  Country: None (occurrence: None)
  Receive Date: 20061220
  Receipt Date: 20060413
  Transmission Date: 20070319
  Serious: No
  Sender: FDA-Public Use
  Company Number: CHPA2006US03131

PATIENT
  Sex: Female

DRUGS (2)
  1. COMMIT [Suspect]
     Dosage: 1LOZ TWICE PER DAY
     Route: 048
     Dates: start: 20060310
  2. NICOTINE [Suspect]
     Dosage: 21MG PER DAY
     Route: 062
     Dates: start: 20060301, end: 20060321

REACTIONS (4)
  - INSOMNIA [None]
  - MYALGIA [None]
  - PAIN [None]
  - TREATMENT NONCOMPLIANCE [None]
